FAERS Safety Report 24846154 (Version 2)
Quarter: 2025Q1

REPORT INFORMATION
  Report Type: Report from Study
  Country: CA (occurrence: CA)
  Receive Date: 20250115
  Receipt Date: 20250120
  Transmission Date: 20250409
  Serious: Yes (Other)
  Sender: NOVARTIS
  Company Number: CA-002147023-NVSC2023CA050275

PATIENT
  Age: 2 Year
  Sex: Male

DRUGS (7)
  1. ILARIS [Suspect]
     Active Substance: CANAKINUMAB
     Indication: Hypergammaglobulinaemia
     Route: 058
     Dates: start: 20230222
  2. ILARIS [Suspect]
     Active Substance: CANAKINUMAB
     Indication: Mevalonate kinase deficiency
     Route: 058
  3. ILARIS [Suspect]
     Active Substance: CANAKINUMAB
     Dosage: 30 MG, Q4W
     Route: 058
     Dates: start: 20231027
  4. PREDNISOLONE [Concomitant]
     Active Substance: PREDNISOLONE
     Indication: Product used for unknown indication
     Dosage: 1 DOSAGE FORM, QD
     Route: 048
     Dates: start: 202201
  5. IRON [Concomitant]
     Active Substance: IRON
     Indication: Product used for unknown indication
     Route: 065
  6. IBUPROFEN [Concomitant]
     Active Substance: IBUPROFEN
     Indication: Product used for unknown indication
     Route: 048
  7. TYLENOL [Concomitant]
     Active Substance: ACETAMINOPHEN
     Indication: Product used for unknown indication
     Route: 048
     Dates: start: 202204

REACTIONS (10)
  - Pneumonia [Unknown]
  - Vomiting [Unknown]
  - Malaise [Unknown]
  - Rhinorrhoea [Recovered/Resolved]
  - Arthralgia [Recovered/Resolved]
  - Hyperhidrosis [Recovered/Resolved]
  - Nasopharyngitis [Recovered/Resolved]
  - Pyrexia [Recovered/Resolved]
  - Cough [Recovered/Resolved]
  - Lymphadenopathy [Unknown]

NARRATIVE: CASE EVENT DATE: 20230101
